FAERS Safety Report 26108679 (Version 1)
Quarter: 2025Q4

REPORT INFORMATION
  Report Type: Spontaneous
  Country: US (occurrence: US)
  Receive Date: 20251201
  Receipt Date: 20251201
  Transmission Date: 20260117
  Serious: No
  Sender: BAYER HEALTHCARE PHARMACEUTICALS INC.
  Company Number: US-BAYER-2025A157111

PATIENT
  Sex: Female

DRUGS (1)
  1. NUBEQA [Suspect]
     Active Substance: DAROLUTAMIDE
     Dosage: 600 MG, BID (2 TABS IN THE MORNING AND 2 TABS AT NIGHT)

REACTIONS (1)
  - Drug ineffective [None]
